FAERS Safety Report 9536173 (Version 1)
Quarter: 2013Q2

REPORT INFORMATION
  Report Type: Spontaneous
  Country: US (occurrence: None)
  Receive Date: 20130507
  Receipt Date: 20130507
  Transmission Date: 20140414
  Serious: Yes (Hospitalization)
  Sender: FDA-Public Use
  Company Number: PHEH2013US002763

PATIENT
  Age: 59 Year
  Sex: Female

DRUGS (20)
  1. AFINITOR (RAD) UNKNOWN [Suspect]
     Indication: PANCREATIC CARCINOMA
     Dates: end: 20120919
  2. SANDOSTATIN (OCTREOTIDE ACETATE) [Concomitant]
  3. SANDOSTATIN (OCTREOTIDE ACETATE) [Concomitant]
  4. NOVOLOG (INSULIN ASPART) [Concomitant]
  5. LANTUS (INSULIN GLARGINE) [Concomitant]
  6. TRIAMTERENE (TRIAMTERENE) [Concomitant]
  7. CRESTOR (ROSUVASTATIN CALCIUM) [Concomitant]
  8. TOPROL XL (METOPROLOL SUCCINATE) (100 MILLIGRAM) (METOPROLOL SUCCINATE) [Concomitant]
  9. PANCRELIPASE (PANCRELIPASE) [Concomitant]
  10. OXYCODONE (OXYCODONE) [Concomitant]
  11. HYDROMORPHONE (HYDROMORPHONE) [Concomitant]
  12. MARIJUANA (CANNABIS SATIVA) (CANNABIS SATIVA) [Concomitant]
  13. TRICOR (FENOFIBRATE) [Concomitant]
  14. OMEPRAZOLE (OMEPRAZOLE) [Concomitant]
  15. CURCUMIN (CURCUMIN) [Concomitant]
  16. GINKGO BILOBA (GINKGO BILOBA) [Concomitant]
  17. STRESSTABS (VITAMIN NOS) [Concomitant]
  18. SUTENT (SUNITINIB MALATE), 37.5 MG [Concomitant]
  19. FISH OIL (FISH OIL) [Concomitant]
  20. VITAMIN D (ERGOCALCIFEROL) [Concomitant]

REACTIONS (12)
  - Pain in jaw [None]
  - Blood triglycerides increased [None]
  - Haemorrhoidal haemorrhage [None]
  - Glossodynia [None]
  - Palmar-plantar erythrodysaesthesia syndrome [None]
  - Nasopharyngitis [None]
  - Epistaxis [None]
  - Hypertension [None]
  - Nausea [None]
  - Vomiting [None]
  - Diarrhoea [None]
  - Pain in extremity [None]
